FAERS Safety Report 22076823 (Version 2)
Quarter: 2023Q2

REPORT INFORMATION
  Report Type: Other
  Country: CN (occurrence: None)
  Receive Date: 20230309
  Receipt Date: 20230426
  Transmission Date: 20230721
  Serious: Yes (Hospitalization)
  Sender: FDA-Public Use
  Company Number: CN-ROCHE-3301428

PATIENT
  Sex: Female

DRUGS (2)
  1. GAVRETO [Suspect]
     Active Substance: PRALSETINIB
     Indication: Lung neoplasm malignant
     Route: 048
     Dates: start: 20221030
  2. GAVRETO [Suspect]
     Active Substance: PRALSETINIB
     Route: 048

REACTIONS (3)
  - Anaemia [Recovered/Resolved]
  - Hypertension [Recovering/Resolving]
  - Platelet count decreased [Unknown]

NARRATIVE: CASE EVENT DATE: 20221030
